FAERS Safety Report 19653031 (Version 1)
Quarter: 2021Q3

REPORT INFORMATION
  Report Type: Spontaneous
  Country: US (occurrence: US)
  Receive Date: 20210803
  Receipt Date: 20210803
  Transmission Date: 20211014
  Serious: Yes (Life-Threatening, Other)
  Sender: FDA-Public Use
  Company Number: US-AMGEN-USASP2021114786

PATIENT

DRUGS (8)
  1. CARFILZOMIB [Suspect]
     Active Substance: CARFILZOMIB
     Indication: PLASMA CELL MYELOMA
     Dosage: 20 MILLIGRAM/SQ. METER, QWK CYCLE DAY 1 (30?MINUTE INFUSION)
     Route: 065
  2. CARFILZOMIB [Suspect]
     Active Substance: CARFILZOMIB
     Dosage: 70 MILLIGRAM/SQ. METER /CYCLE 1 DAY 8 PLUS (30 MINUTE INFUSION)
     Route: 065
  3. DARATUMUMAB [Concomitant]
     Active Substance: DARATUMUMAB
     Indication: PLASMA CELL MYELOMA
     Dosage: 16 MILLIGRAM/KILOGRAM, QWK /WEEKLY DURING CYCLES 1 AND 2
     Route: 042
  4. DARATUMUMAB [Concomitant]
     Active Substance: DARATUMUMAB
     Dosage: 16 MILLIGRAM/KILOGRAM, Q2WK / EVERY 2 WEEKS DURING CYCLES 3 THROUGH 6, AND EVERY 4 WEEKS THEREAFTER
     Route: 042
  5. DEXAMETHASONE. [Concomitant]
     Active Substance: DEXAMETHASONE
     Indication: PLASMA CELL MYELOMA
     Dosage: 40 MILLIGRAM, QWK / IN  PATIENTS AGED { 75
     Route: 065
  6. FILGRASTIM [Suspect]
     Active Substance: FILGRASTIM
     Indication: AUTOLOGOUS HAEMATOPOIETIC STEM CELL TRANSPLANT
     Dosage: UNK
     Route: 065
  7. DEXAMETHASONE. [Concomitant]
     Active Substance: DEXAMETHASONE
     Dosage: 20 MILLIGRAM, QWK / IN AGE } 75 YEARS
     Route: 065
  8. LENALIDOMIDE [Concomitant]
     Active Substance: LENALIDOMIDE
     Indication: PLASMA CELL MYELOMA
     Dosage: 25 MILLIGRAM/ ON DAYS 1 THROUGH 21 OF EACH CYCLE
     Route: 065

REACTIONS (46)
  - Leukopenia [Unknown]
  - Diarrhoea [Unknown]
  - Pneumonia [Unknown]
  - Productive cough [Unknown]
  - Nausea [Unknown]
  - Pain in extremity [Unknown]
  - Headache [Unknown]
  - Insomnia [Unknown]
  - Throat irritation [Unknown]
  - Rash pruritic [Unknown]
  - Constipation [Unknown]
  - Vomiting [Unknown]
  - Hypertension [Unknown]
  - Hyperglycaemia [Unknown]
  - Influenza [Unknown]
  - Gastroenteritis [Unknown]
  - Deep vein thrombosis [Unknown]
  - Thrombophlebitis superficial [Unknown]
  - Cardiac failure [Unknown]
  - Back pain [Unknown]
  - Neutropenia [Unknown]
  - Fatigue [Unknown]
  - Alanine aminotransferase increased [Unknown]
  - Pulmonary embolism [Unknown]
  - Tremor [Unknown]
  - Therapy partial responder [Unknown]
  - Anaemia [Unknown]
  - Cough [Unknown]
  - Sinus tachycardia [Unknown]
  - Muscle spasms [Unknown]
  - Thrombocytopenia [Unknown]
  - Throat tightness [Unknown]
  - Bronchospasm [Unknown]
  - Dyspnoea exertional [Unknown]
  - Dyspnoea [Unknown]
  - Lymphopenia [Unknown]
  - Plasma cell myeloma [Unknown]
  - Upper respiratory tract infection [Unknown]
  - Rash [Unknown]
  - Tachycardia [Unknown]
  - Atypical pneumonia [Unknown]
  - Left ventricular failure [Unknown]
  - Influenza like illness [Unknown]
  - Pyrexia [Unknown]
  - Chest pain [Unknown]
  - Off label use [Unknown]
